FAERS Safety Report 13834188 (Version 3)
Quarter: 2017Q3

REPORT INFORMATION
  Report Type: Report from Study
  Country: CA (occurrence: CA)
  Receive Date: 20170804
  Receipt Date: 20170824
  Transmission Date: 20171127
  Serious: Yes (Hospitalization)
  Sender: FDA-Public Use
  Company Number: CA-JNJFOC-20170801953

PATIENT
  Age: 34 Year
  Sex: Female
  Weight: 46.2 kg

DRUGS (3)
  1. REMICADE [Suspect]
     Active Substance: INFLIXIMAB
     Indication: CROHN^S DISEASE
     Dosage: STRENGTH = 100 MG
     Route: 042
     Dates: start: 20140613
  2. REMICADE [Suspect]
     Active Substance: INFLIXIMAB
     Indication: ANKYLOSING SPONDYLITIS
     Dosage: STRENGTH = 100 MG
     Route: 042
     Dates: start: 20140613
  3. IMURAN [Concomitant]
     Active Substance: AZATHIOPRINE
     Route: 048

REACTIONS (5)
  - Endometriosis [Unknown]
  - Intestinal resection [Recovering/Resolving]
  - Incorrect dose administered [Unknown]
  - Ovarian cyst [Unknown]
  - Off label use [Unknown]

NARRATIVE: CASE EVENT DATE: 20170720
